FAERS Safety Report 9933703 (Version 2)
Quarter: 2014Q1

REPORT INFORMATION
  Report Type: Report from Study
  Country: US (occurrence: US)
  Receive Date: 20140228
  Receipt Date: 20140228
  Transmission Date: 20141002
  Serious: No
  Sender: FDA-Public Use
  Company Number: US-MYLANLABS-2013S1010968

PATIENT
  Age: 60 Year
  Sex: Male

DRUGS (4)
  1. AMNESTEEM CAPSULES [Suspect]
     Indication: ROSACEA
     Route: 048
     Dates: start: 201211, end: 20130515
  2. CLARAVIS [Suspect]
     Indication: ROSACEA
     Dates: start: 2012, end: 2012
  3. ZOLOFT [Concomitant]
     Dosage: HAS TAKEN FOR YEARS
  4. LORAZEPAM [Concomitant]
     Dosage: HAS TAKEN FOR YEARS

REACTIONS (2)
  - Sinusitis [Not Recovered/Not Resolved]
  - Headache [Not Recovered/Not Resolved]
